FAERS Safety Report 21358585 (Version 1)
Quarter: 2022Q3

REPORT INFORMATION
  Report Type: Spontaneous
  Country: US (occurrence: US)
  Receive Date: 20220921
  Receipt Date: 20220921
  Transmission Date: 20221026
  Serious: No
  Sender: FDA-Public Use
  Company Number: US-009507513-2208USA008968

PATIENT
  Age: 7 Decade
  Sex: Male

DRUGS (10)
  1. TEMODAR [Suspect]
     Active Substance: TEMOZOLOMIDE
     Indication: Metastases to the mediastinum
     Dosage: UNK , RECEIVED TWO CYCLES OF THERAPY
     Route: 048
  2. TEMODAR [Suspect]
     Active Substance: TEMOZOLOMIDE
     Indication: Metastases to lung
  3. TEMODAR [Suspect]
     Active Substance: TEMOZOLOMIDE
     Indication: Metastases to adrenals
  4. TEMODAR [Suspect]
     Active Substance: TEMOZOLOMIDE
     Indication: Metastases to liver
  5. TEMODAR [Suspect]
     Active Substance: TEMOZOLOMIDE
     Indication: Gallbladder adenocarcinoma
  6. CAPECITABINE [Concomitant]
     Active Substance: CAPECITABINE
     Indication: Lymphadenopathy
     Dosage: UNK, RECEIVED TWO CYCLES OF THERAPY
  7. CAPECITABINE [Concomitant]
     Active Substance: CAPECITABINE
     Indication: Metastases to the mediastinum
  8. CAPECITABINE [Concomitant]
     Active Substance: CAPECITABINE
     Indication: Metastases to lung
  9. CAPECITABINE [Concomitant]
     Active Substance: CAPECITABINE
     Indication: Metastases to adrenals
  10. CAPECITABINE [Concomitant]
     Active Substance: CAPECITABINE
     Indication: Metastases to liver

REACTIONS (1)
  - Product use in unapproved indication [Unknown]
